FAERS Safety Report 8793509 (Version 1)
Quarter: 2012Q4

REPORT INFORMATION
  Report Type: 
  Country: US (occurrence: US)
  Receive Date: 20120917
  Receipt Date: 20120917
  Transmission Date: 20130627
  Serious: No
  Sender: FDA-Public Use
  Company Number: US-B.I. PHARMACEUTICALS,INC./RIDGEFIELD-2012-BP-22382BP

PATIENT
  Age: 87 Year
  Sex: Male

DRUGS (13)
  1. SPIRIVA [Suspect]
     Indication: DYSPNOEA
     Dosage: 18 mcg
     Route: 055
  2. SPIRIVA [Suspect]
     Route: 048
     Dates: start: 20120909, end: 20120909
  3. AMIODARONE [Concomitant]
     Indication: CARDIAC DISORDER
     Route: 048
  4. ASPIRIN [Concomitant]
     Dosage: 81 mg
     Route: 048
  5. CALCIUM [Concomitant]
     Indication: SUPPLEMENTATION THERAPY
     Dosage: 600 mg
     Route: 048
  6. GLIPIZIDE [Concomitant]
     Indication: DIABETES MELLITUS
     Dosage: 2.5 mg
     Route: 048
  7. LEVOTHYROXINE [Concomitant]
     Indication: THYROID DISORDER
     Dosage: 0.25 mg
     Route: 048
  8. PROBIOTIC [Concomitant]
     Route: 048
  9. LISINOPRIL [Concomitant]
     Indication: HYPERTENSION
     Dosage: 10 mg
     Route: 048
  10. VITAMINS [Concomitant]
     Indication: SUPPLEMENTATION THERAPY
     Route: 048
  11. RADINE [Concomitant]
     Indication: ABDOMINAL DISCOMFORT
  12. PREDNISONE [Concomitant]
     Route: 048
  13. ACETAMINOPHEN [Concomitant]
     Indication: MUSCULOSKELETAL PAIN
     Route: 048

REACTIONS (1)
  - Incorrect route of drug administration [Recovered/Resolved]
